FAERS Safety Report 15432690 (Version 1)
Quarter: 2018Q3

REPORT INFORMATION
  Report Type: Report from Study
  Country: US (occurrence: US)
  Receive Date: 20180927
  Receipt Date: 20180927
  Transmission Date: 20181010
  Serious: No
  Sender: FDA-Public Use
  Company Number: PHHY2018US109072

PATIENT
  Sex: Female

DRUGS (1)
  1. COSENTYX [Suspect]
     Active Substance: SECUKINUMAB
     Indication: PSORIASIS
     Dosage: 150 MG/ ML (PREFILLED SYRINGE), UNK
     Route: 058

REACTIONS (3)
  - Abdominal distension [Unknown]
  - Diarrhoea [Unknown]
  - Frequent bowel movements [Unknown]
